FAERS Safety Report 25435586 (Version 1)
Quarter: 2025Q2

REPORT INFORMATION
  Report Type: Spontaneous
  Country: DE (occurrence: DE)
  Receive Date: 20250613
  Receipt Date: 20250613
  Transmission Date: 20250717
  Serious: Yes (Death, Other)
  Sender: MYLAN
  Company Number: DE-AMGEN-DEUSP2025106441

PATIENT
  Sex: Male

DRUGS (40)
  1. LENALIDOMIDE [Suspect]
     Active Substance: LENALIDOMIDE
     Indication: Plasma cell leukaemia
  2. LENALIDOMIDE [Suspect]
     Active Substance: LENALIDOMIDE
     Route: 065
  3. LENALIDOMIDE [Suspect]
     Active Substance: LENALIDOMIDE
     Route: 065
  4. LENALIDOMIDE [Suspect]
     Active Substance: LENALIDOMIDE
  5. CARFILZOMIB [Suspect]
     Active Substance: CARFILZOMIB
     Indication: Plasma cell leukaemia
  6. CARFILZOMIB [Suspect]
     Active Substance: CARFILZOMIB
     Route: 065
  7. CARFILZOMIB [Suspect]
     Active Substance: CARFILZOMIB
     Route: 065
  8. CARFILZOMIB [Suspect]
     Active Substance: CARFILZOMIB
  9. DEXAMETHASONE [Suspect]
     Active Substance: DEXAMETHASONE
     Indication: Plasma cell leukaemia
  10. DEXAMETHASONE [Suspect]
     Active Substance: DEXAMETHASONE
     Route: 065
  11. DEXAMETHASONE [Suspect]
     Active Substance: DEXAMETHASONE
     Route: 065
  12. DEXAMETHASONE [Suspect]
     Active Substance: DEXAMETHASONE
  13. DARATUMUMAB [Concomitant]
     Active Substance: DARATUMUMAB
     Indication: Plasma cell leukaemia
  14. DARATUMUMAB [Concomitant]
     Active Substance: DARATUMUMAB
     Route: 065
  15. DARATUMUMAB [Concomitant]
     Active Substance: DARATUMUMAB
     Route: 065
  16. DARATUMUMAB [Concomitant]
     Active Substance: DARATUMUMAB
  17. POMALIDOMIDE [Concomitant]
     Active Substance: POMALIDOMIDE
     Indication: Plasma cell leukaemia
  18. POMALIDOMIDE [Concomitant]
     Active Substance: POMALIDOMIDE
     Route: 065
  19. POMALIDOMIDE [Concomitant]
     Active Substance: POMALIDOMIDE
     Route: 065
  20. POMALIDOMIDE [Concomitant]
     Active Substance: POMALIDOMIDE
  21. CYCLOPHOSPHAMIDE [Concomitant]
     Active Substance: CYCLOPHOSPHAMIDE
     Indication: Plasma cell leukaemia
  22. CYCLOPHOSPHAMIDE [Concomitant]
     Active Substance: CYCLOPHOSPHAMIDE
     Route: 065
  23. CYCLOPHOSPHAMIDE [Concomitant]
     Active Substance: CYCLOPHOSPHAMIDE
     Route: 065
  24. CYCLOPHOSPHAMIDE [Concomitant]
     Active Substance: CYCLOPHOSPHAMIDE
  25. BORTEZOMIB [Concomitant]
     Active Substance: BORTEZOMIB
     Indication: Plasma cell leukaemia
  26. BORTEZOMIB [Concomitant]
     Active Substance: BORTEZOMIB
     Route: 065
  27. BORTEZOMIB [Concomitant]
     Active Substance: BORTEZOMIB
     Route: 065
  28. BORTEZOMIB [Concomitant]
     Active Substance: BORTEZOMIB
  29. CISPLATIN [Concomitant]
     Active Substance: CISPLATIN
     Indication: Plasma cell leukaemia
  30. CISPLATIN [Concomitant]
     Active Substance: CISPLATIN
     Route: 065
  31. CISPLATIN [Concomitant]
     Active Substance: CISPLATIN
     Route: 065
  32. CISPLATIN [Concomitant]
     Active Substance: CISPLATIN
  33. DOXORUBICIN [Concomitant]
     Active Substance: DOXORUBICIN
     Indication: Plasma cell leukaemia
  34. DOXORUBICIN [Concomitant]
     Active Substance: DOXORUBICIN
     Route: 065
  35. DOXORUBICIN [Concomitant]
     Active Substance: DOXORUBICIN
     Route: 065
  36. DOXORUBICIN [Concomitant]
     Active Substance: DOXORUBICIN
  37. ETOPOSIDE [Concomitant]
     Active Substance: ETOPOSIDE
     Indication: Plasma cell leukaemia
  38. ETOPOSIDE [Concomitant]
     Active Substance: ETOPOSIDE
     Route: 065
  39. ETOPOSIDE [Concomitant]
     Active Substance: ETOPOSIDE
     Route: 065
  40. ETOPOSIDE [Concomitant]
     Active Substance: ETOPOSIDE

REACTIONS (3)
  - Plasma cell leukaemia [Fatal]
  - Therapy partial responder [Unknown]
  - Off label use [Unknown]
